FAERS Safety Report 10427914 (Version 1)
Quarter: 2014Q3

REPORT INFORMATION
  Report Type: Spontaneous
  Country: US (occurrence: None)
  Receive Date: 20140902
  Receipt Date: 20140902
  Transmission Date: 20150326
  Serious: Yes (Disabling, Other)
  Sender: FDA-Public Use
  Company Number: None

PATIENT
  Age: 37 Year
  Sex: Female
  Weight: 58.97 kg

DRUGS (2)
  1. CIPRO [Suspect]
     Active Substance: CIPROFLOXACIN HYDROCHLORIDE
     Indication: GASTROINTESTINAL BACTERIAL INFECTION
     Dosage: 5 TWICE DAILY TAKEN BY MOUTH
     Route: 048
     Dates: start: 20140528, end: 20140602
  2. CIPRO [Suspect]
     Active Substance: CIPROFLOXACIN HYDROCHLORIDE
     Indication: DIARRHOEA
     Dosage: 5 TWICE DAILY TAKEN BY MOUTH
     Route: 048
     Dates: start: 20140528, end: 20140602

REACTIONS (7)
  - Amnesia [None]
  - Headache [None]
  - Migraine [None]
  - Dizziness [None]
  - Photophobia [None]
  - Thinking abnormal [None]
  - Vision blurred [None]

NARRATIVE: CASE EVENT DATE: 20140528
